FAERS Safety Report 4876284-2 (Version None)
Quarter: 2005Q4

REPORT INFORMATION
  Report Type: 
  Country: None (occurrence: None)
  Receive Date: 20051206
  Receipt Date: 20051026
  Transmission Date: 20060501
  Serious: No
  Sender: FDA-Public Use
  Company Number: USA0510111906

PATIENT
  Age: 67 Year
  Sex: Female
  Weight: 50 kg

DRUGS (6)
  1. CYMBALTA [Suspect]
     Indication: PAIN
     Dosage: 30 MG
     Dates: start: 20051025
  2. AVAPRO [Concomitant]
  3. VITAMINS [Concomitant]
  4. FOSAMAX [Concomitant]
  5. CELEBREX [Concomitant]
  6. DARVOCET [Concomitant]

REACTIONS (3)
  - ANOREXIA [None]
  - FOOD INTOLERANCE [None]
  - NAUSEA [None]
